FAERS Safety Report 6937684-X (Version None)
Quarter: 2010Q3

REPORT INFORMATION
  Report Type: 
  Country: None (occurrence: None)
  Receive Date: 20100820
  Receipt Date: 20100820
  Transmission Date: 20110219
  Serious: No
  Sender: FDA-Public Use
  Company Number: None

PATIENT
  Age: 47 Year
  Sex: Female
  Weight: 53.5244 kg

DRUGS (3)
  1. MIRENA [Suspect]
     Indication: ENDOMETRIAL HYPERTROPHY
     Dates: start: 20100422, end: 20100820
  2. MIRENA [Suspect]
     Indication: MENORRHAGIA
     Dates: start: 20100422, end: 20100820
  3. MIRENA [Suspect]
     Indication: UTERINE LEIOMYOMA
     Dates: start: 20100422, end: 20100820

REACTIONS (16)
  - ARTHRALGIA [None]
  - BREAST TENDERNESS [None]
  - CHILLS [None]
  - COITAL BLEEDING [None]
  - CONTUSION [None]
  - DIZZINESS [None]
  - FATIGUE [None]
  - MENOMETRORRHAGIA [None]
  - MIGRAINE [None]
  - MOOD SWINGS [None]
  - NAUSEA [None]
  - PAIN IN EXTREMITY [None]
  - PELVIC PAIN [None]
  - PYREXIA [None]
  - SINUSITIS [None]
  - VOMITING [None]
